FAERS Safety Report 7919936-X (Version None)
Quarter: 2011Q4

REPORT INFORMATION
  Report Type: 
  Country: None (occurrence: None)
  Receive Date: 20111117
  Receipt Date: 20111108
  Transmission Date: 20120403
  Serious: Yes (Hospitalization)
  Sender: FDA-Public Use
  Company Number: US-JNJFOC-20111103625

PATIENT
  Sex: Male
  Weight: 88.45 kg

DRUGS (4)
  1. OXYBUTYNIN [Concomitant]
     Indication: BLADDER DISORDER
  2. REMICADE [Suspect]
     Indication: PSORIATIC ARTHROPATHY
     Route: 042
     Dates: start: 20080101
  3. LISINOPRIL [Concomitant]
     Indication: HYPERTENSION
  4. PRILOSEC [Concomitant]
     Indication: GASTROOESOPHAGEAL REFLUX DISEASE
     Dates: start: 20110101

REACTIONS (5)
  - WEIGHT FLUCTUATION [None]
  - SKIN LESION [None]
  - CELLULITIS [None]
  - PSORIATIC ARTHROPATHY [None]
  - IRRITABLE BOWEL SYNDROME [None]
